FAERS Safety Report 7901210 (Version 2)
Quarter: 2014Q1

REPORT INFORMATION
  Report Type: Spontaneous
  Country: DE (occurrence: DE)
  Receive Date: 20110415
  Receipt Date: 20140113
  Transmission Date: 20141002
  Serious: Yes (Other)
  Sender: FDA-Public Use
  Company Number: PHHY2011DE30385

PATIENT
  Age: 32 Year
  Sex: Female

DRUGS (2)
  1. LEFLUNOMIDE [Suspect]
     Indication: RHEUMATOID ARTHRITIS
     Dosage: 20 MG, DAILY
  2. LEFLUNOMIDE [Suspect]
     Indication: IMMUNOSUPPRESSION

REACTIONS (10)
  - Bone abscess [Recovered/Resolved]
  - Aspergillus infection [Recovered/Resolved]
  - Lung infiltration [Recovered/Resolved]
  - Bone marrow failure [Recovered/Resolved]
  - Aplastic anaemia [Recovered/Resolved]
  - Pyrexia [Recovered/Resolved]
  - Fatigue [Recovered/Resolved]
  - Purpura [Recovered/Resolved]
  - Ecchymosis [Recovered/Resolved]
  - Pancytopenia [Recovered/Resolved]
